FAERS Safety Report 6608519-X (Version None)
Quarter: 2010Q1

REPORT INFORMATION
  Report Type: 
  Country: None (occurrence: None)
  Receive Date: 20100301
  Receipt Date: 20100219
  Transmission Date: 20100710
  Serious: Yes (Hospitalization, Other)
  Sender: FDA-Public Use
  Company Number: US-ABBOTT-09P-163-0501263-00

PATIENT
  Sex: Female
  Weight: 56.75 kg

DRUGS (2)
  1. HUMIRA [Suspect]
     Indication: RHEUMATOID ARTHRITIS
     Route: 058
     Dates: start: 20050601, end: 20081219
  2. HUMIRA [Suspect]
     Indication: CROHN'S DISEASE

REACTIONS (6)
  - DIVERTICULITIS [None]
  - IMMUNE SYSTEM DISORDER [None]
  - INTESTINAL OBSTRUCTION [None]
  - PROCEDURAL COMPLICATION [None]
  - SEPSIS [None]
  - SINUSITIS [None]
